FAERS Safety Report 6779361-4 (Version None)
Quarter: 2010Q2

REPORT INFORMATION
  Report Type: 
  Country: None (occurrence: None)
  Receive Date: 20100618
  Receipt Date: 20100610
  Transmission Date: 20101027
  Serious: Yes (Hospitalization)
  Sender: FDA-Public Use
  Company Number: PHHO2009DE05688

PATIENT
  Sex: Female

DRUGS (4)
  1. CERTICAN [Suspect]
     Indication: RENAL TRANSPLANT
     Dosage: 1.5 MG/DAILY
     Route: 048
     Dates: start: 20090313, end: 20090401
  2. CERTICAN [Suspect]
     Dosage: 2 MG/DAILY
     Route: 048
     Dates: start: 20090402, end: 20090402
  3. CERTICAN [Suspect]
     Dosage: 2.5 MG/DAILY
     Route: 048
     Dates: start: 20090403
  4. NEORAL [Suspect]
     Indication: RENAL TRANSPLANT
     Dosage: 100 MG/DAILY
     Route: 048
     Dates: start: 20081213, end: 20090403

REACTIONS (2)
  - GASTROENTERITIS [None]
  - UROSEPSIS [None]
